FAERS Safety Report 12822548 (Version 1)
Quarter: 2016Q4

REPORT INFORMATION
  Report Type: Spontaneous
  Country: US (occurrence: US)
  Receive Date: 20161006
  Receipt Date: 20161006
  Transmission Date: 20170207
  Serious: No
  Sender: FDA-Public Use
  Company Number: US-SHIONOGI, INC-2016000738

PATIENT
  Sex: Female
  Weight: 77.98 kg

DRUGS (3)
  1. CORTISONE ACETATE. [Concomitant]
     Active Substance: CORTISONE ACETATE
     Indication: PRODUCT USED FOR UNKNOWN INDICATION
     Dosage: UNK
     Route: 065
     Dates: end: 20160606
  2. PREMARIN [Concomitant]
     Active Substance: ESTROGENS, CONJUGATED
     Indication: INFECTION PROPHYLAXIS
     Dosage: 4 G, QD
     Route: 065
     Dates: start: 20160503, end: 20160606
  3. OSPHENA [Suspect]
     Active Substance: OSPEMIFENE
     Indication: PRODUCT USED FOR UNKNOWN INDICATION
     Dosage: UNK
     Route: 065
     Dates: start: 20160622, end: 20160717

REACTIONS (4)
  - Muscle spasms [Unknown]
  - Vaginal haemorrhage [Unknown]
  - Fatigue [Unknown]
  - Vaginal discharge [Unknown]

NARRATIVE: CASE EVENT DATE: 2016
